FAERS Safety Report 4438734-5 (Version None)
Quarter: 2004Q3

REPORT INFORMATION
  Report Type: 
  Country: None (occurrence: None)
  Receive Date: 20040830
  Receipt Date: 20040830
  Transmission Date: 20050211
  Serious: Yes (Other)
  Sender: FDA-Public Use
  Company Number: None

PATIENT
  Sex: Male
  Weight: 35.1538 kg

DRUGS (2)
  1. ULTRASE MT20 [Suspect]
     Indication: CYSTIC FIBROSIS
     Dosage: 3 CAPSULES BEFORE EACH MEAL 1 CAPSULE (SEE IMAGE)
  2. ULTRASE MT20 [Suspect]
     Indication: MALABSORPTION
     Dosage: 3 CAPSULES BEFORE EACH MEAL 1 CAPSULE (SEE IMAGE)

REACTIONS (5)
  - BODY MASS INDEX DECREASED [None]
  - FREQUENT BOWEL MOVEMENTS [None]
  - MUSCLE CRAMP [None]
  - PHARMACEUTICAL PRODUCT COMPLAINT [None]
  - WEIGHT DECREASED [None]
